FAERS Safety Report 19436457 (Version 1)
Quarter: 2021Q2

REPORT INFORMATION
  Report Type: Spontaneous
  Country: US (occurrence: US)
  Receive Date: 20210618
  Receipt Date: 20210618
  Transmission Date: 20210717
  Serious: Yes (Other)
  Sender: FDA-Public Use
  Company Number: US-SA-2021SA202164

PATIENT
  Age: 65 Year
  Sex: Female

DRUGS (1)
  1. DUPIXENT [Suspect]
     Active Substance: DUPILUMAB
     Indication: DERMATITIS ATOPIC
     Route: 058
     Dates: start: 20210507

REACTIONS (6)
  - Sleep disorder [Unknown]
  - Eczema [Unknown]
  - Pruritus [Unknown]
  - Skin exfoliation [Unknown]
  - Cataract [Unknown]
  - Dry skin [Unknown]

NARRATIVE: CASE EVENT DATE: 2021
